FAERS Safety Report 8759653 (Version 2)
Quarter: 2013Q4

REPORT INFORMATION
  Report Type: Spontaneous
  Country: US (occurrence: US)
  Receive Date: 20120829
  Receipt Date: 20131101
  Transmission Date: 20140711
  Serious: No
  Sender: FDA-Public Use
  Company Number: US-009507513-1208USA003026

PATIENT
  Age: 63 Year
  Sex: Male

DRUGS (1)
  1. ZOCOR [Suspect]
     Indication: BLOOD CHOLESTEROL INCREASED
     Dosage: 1 DF, QD
     Dates: start: 2009, end: 201206

REACTIONS (2)
  - Liver injury [Recovering/Resolving]
  - Blood cholesterol increased [Recovering/Resolving]
